FAERS Safety Report 18276387 (Version 1)
Quarter: 2020Q3

REPORT INFORMATION
  Report Type: Other
  Country: CA (occurrence: CA)
  Receive Date: 20200917
  Receipt Date: 20200917
  Transmission Date: 20201103
  Serious: Yes (Other)
  Sender: FDA-Public Use
  Company Number: CA-APOTEX-2020AP017860

PATIENT
  Age: 50 Year
  Sex: Female

DRUGS (1)
  1. ACETAMINOPHEN. [Suspect]
     Active Substance: ACETAMINOPHEN
     Indication: DRUG ABUSE
     Dosage: UNK
     Route: 050

REACTIONS (10)
  - Aphonia [Recovered/Resolved]
  - Pharyngeal exudate [Recovered/Resolved]
  - Drug abuse [Recovered/Resolved]
  - Necrosis [Recovered/Resolved]
  - Scar [Recovered/Resolved]
  - Dysphonia [Recovered/Resolved]
  - Inflammation [Recovered/Resolved]
  - Stenosis [Recovered/Resolved]
  - Pharyngeal disorder [Recovered/Resolved]
  - Cartilage injury [Recovered/Resolved]
